FAERS Safety Report 12928973 (Version 1)
Quarter: 2016Q4

REPORT INFORMATION
  Report Type: Report from Study
  Country: NL (occurrence: NL)
  Receive Date: 20161110
  Receipt Date: 20161110
  Transmission Date: 20170207
  Serious: Yes (Other)
  Sender: FDA-Public Use
  Company Number: NL-AMGEN-NLDSL2016155995

PATIENT
  Age: 61 Year
  Sex: Male

DRUGS (1)
  1. XGEVA [Suspect]
     Active Substance: DENOSUMAB
     Indication: PRODUCT USED FOR UNKNOWN INDICATION
     Dosage: 120
     Route: 058
     Dates: start: 20160502, end: 20160823

REACTIONS (2)
  - Osteonecrosis [Unknown]
  - Tooth extraction [Unknown]

NARRATIVE: CASE EVENT DATE: 20160819
